FAERS Safety Report 18226808 (Version 1)
Quarter: 2020Q3

REPORT INFORMATION
  Report Type: Spontaneous
  Country: US (occurrence: US)
  Receive Date: 20200903
  Receipt Date: 20200903
  Transmission Date: 20201103
  Serious: No
  Sender: FDA-Public Use
  Company Number: US-TARO-2019TAR00707

PATIENT
  Age: 75 Year
  Sex: Female
  Weight: 63.49 kg

DRUGS (1)
  1. CLOBETASOL PROPIONATE OINTMENT USP 0.05% [Suspect]
     Active Substance: CLOBETASOL PROPIONATE
     Indication: PRURITUS
     Dosage: ^A SMALL AMOUNT^, 2X/DAY
     Route: 061
     Dates: start: 20190925

REACTIONS (5)
  - Drug ineffective [Not Recovered/Not Resolved]
  - Erythema [Not Recovered/Not Resolved]
  - Product substitution issue [Not Recovered/Not Resolved]
  - Pruritus [Not Recovered/Not Resolved]
  - Incorrect product administration duration [Not Recovered/Not Resolved]

NARRATIVE: CASE EVENT DATE: 20190925
